FAERS Safety Report 8421855-X (Version None)
Quarter: 2012Q2

REPORT INFORMATION
  Report Type: 
  Country: None (occurrence: None)
  Receive Date: 20120608
  Receipt Date: 20120604
  Transmission Date: 20120825
  Serious: Yes (Other)
  Sender: FDA-Public Use
  Company Number: US-PFIZER INC-2012118305

PATIENT
  Sex: Male

DRUGS (13)
  1. FUROSEMIDE [Concomitant]
     Dosage: 40 MG
  2. SOTALOL [Concomitant]
     Dosage: 80 MG, UNK
  3. ULORIC [Concomitant]
     Dosage: 40 MG, UNK
  4. LIPITOR [Concomitant]
     Dosage: 20 MG, UNK
  5. PLAVIX [Concomitant]
     Dosage: 75 MG, UNK
  6. PREGABALIN [Suspect]
     Indication: DIABETIC NEUROPATHY
     Dosage: 75 MG, 3X/DAY
  7. NIASPAN [Concomitant]
     Dosage: 500 MG, UNK
  8. DIOVAN [Concomitant]
     Dosage: 80 MG, UNK
  9. GLIPIZIDE [Concomitant]
     Dosage: 5 MG, UNK
  10. OMEPRAZOLE [Concomitant]
     Dosage: UNK
  11. LYRICA [Suspect]
     Dosage: 50 MG
  12. ZETIA [Concomitant]
     Dosage: 10 MG, UNK
  13. JANUVIA [Concomitant]
     Dosage: 100 MG, UNK

REACTIONS (4)
  - BREAST ENLARGEMENT [None]
  - BREAST SWELLING [None]
  - GYNAECOMASTIA [None]
  - BREAST PAIN [None]
